FAERS Safety Report 4638112-X (Version None)
Quarter: 2005Q2

REPORT INFORMATION
  Report Type: 
  Country: None (occurrence: None)
  Receive Date: 20050415
  Receipt Date: 20050323
  Transmission Date: 20051028
  Serious: Yes (Other)
  Sender: FDA-Public Use
  Company Number: USA050290776

PATIENT
  Age: 83 Year
  Sex: Female

DRUGS (2)
  1. EVISTA [Suspect]
     Indication: HORMONE LEVEL ABNORMAL
  2. ESTROGEN NOS [Concomitant]

REACTIONS (5)
  - BLINDNESS UNILATERAL [None]
  - EYE HAEMORRHAGE [None]
  - MACULAR DEGENERATION [None]
  - VISUAL DISTURBANCE [None]
  - VITREOUS DETACHMENT [None]
